FAERS Safety Report 4733265-7 (Version None)
Quarter: 2005Q3

REPORT INFORMATION
  Report Type: 
  Country: None (occurrence: None)
  Receive Date: 20050803
  Receipt Date: 20050705
  Transmission Date: 20060218
  Serious: Yes (Death)
  Sender: FDA-Public Use
  Company Number: US-BRISTOL-MYERS SQUIBB COMPANY-13026174

PATIENT
  Age: 78 Year
  Sex: Male

DRUGS (2)
  1. MEGACE [Suspect]
     Indication: INCREASED APPETITE
     Route: 048
     Dates: start: 20050210, end: 20050627
  2. XELODA [Concomitant]
     Route: 048
     Dates: start: 20041101, end: 20050516

REACTIONS (1)
  - MALIGNANT NEOPLASM PROGRESSION [None]
